FAERS Safety Report 18172386 (Version 2)
Quarter: 2020Q3

REPORT INFORMATION
  Report Type: Other
  Country: US (occurrence: US)
  Receive Date: 20200820
  Receipt Date: 20200901
  Transmission Date: 20201103
  Serious: Yes (Death, Hospitalization)
  Sender: FDA-Public Use
  Company Number: US-ROCHE-2572598

PATIENT
  Sex: Male

DRUGS (6)
  1. PAXIL [Concomitant]
     Active Substance: PAROXETINE HYDROCHLORIDE
  2. BACLOFEN. [Concomitant]
     Active Substance: BACLOFEN
  3. OCREVUS [Suspect]
     Active Substance: OCRELIZUMAB
     Indication: SECONDARY PROGRESSIVE MULTIPLE SCLEROSIS
     Dosage: 300MG X 2 DOSES 15 DAYS APART INITIALLY THEN 600MG EVERY 6 MONTHS
     Route: 065
     Dates: start: 201710, end: 20200317
  4. METHENAMINE [Concomitant]
     Active Substance: METHENAMINE
  5. LIPITOR [Concomitant]
     Active Substance: ATORVASTATIN CALCIUM
  6. ASA [Concomitant]
     Active Substance: ASPIRIN

REACTIONS (3)
  - Cardiac arrest [Fatal]
  - Pneumonia [Unknown]
  - Volvulus [Unknown]
